FAERS Safety Report 25009156 (Version 5)
Quarter: 2025Q3

REPORT INFORMATION
  Report Type: Spontaneous
  Country: EU (occurrence: EU)
  Receive Date: 20250225
  Receipt Date: 20250715
  Transmission Date: 20251021
  Serious: Yes (Other)
  Sender: NOVARTIS
  Company Number: None

PATIENT
  Age: 57 Year
  Sex: Male
  Weight: 96 kg

DRUGS (14)
  1. COSENTYX [Suspect]
     Active Substance: SECUKINUMAB
     Indication: Psoriatic arthropathy
     Dosage: 300 MG, QW
     Route: 058
     Dates: start: 20240523, end: 20240613
  2. COSENTYX [Suspect]
     Active Substance: SECUKINUMAB
     Dosage: 300 MG, QMO
     Route: 058
     Dates: start: 20240523, end: 20250112
  3. COSENTYX [Suspect]
     Active Substance: SECUKINUMAB
     Dosage: 300 MG, QMO
     Route: 058
     Dates: start: 20240523, end: 20250112
  4. COSENTYX [Suspect]
     Active Substance: SECUKINUMAB
     Dosage: 300 MG, QMO
     Route: 058
     Dates: start: 20240523, end: 20250112
  5. COSENTYX [Suspect]
     Active Substance: SECUKINUMAB
     Dosage: 300 MG, QMO
     Route: 058
     Dates: start: 20240523, end: 20240613
  6. COSENTYX [Suspect]
     Active Substance: SECUKINUMAB
     Dosage: 300 MG, QMO
     Route: 058
     Dates: start: 20240620, end: 20250112
  7. COSENTYX [Suspect]
     Active Substance: SECUKINUMAB
     Dosage: 300 MG, QMO
     Route: 058
     Dates: start: 20240620, end: 20250112
  8. COSENTYX [Suspect]
     Active Substance: SECUKINUMAB
     Dosage: 300 MG, QMO
     Route: 058
     Dates: start: 20240620, end: 20250112
  9. COSENTYX [Suspect]
     Active Substance: SECUKINUMAB
     Dosage: 300 MG, QMO
     Route: 058
     Dates: start: 20240620, end: 20250112
  10. COSENTYX [Suspect]
     Active Substance: SECUKINUMAB
     Dosage: 300 MG, QMO, ( 300 MG SOLUCION INYECTABLE EN PLUMA PRECARGADA, 1 PLUMA PRECARGADA DE 2 ML)
     Route: 058
     Dates: start: 20240620, end: 20250112
  11. IDACIO [Suspect]
     Active Substance: ADALIMUMAB-AACF
     Indication: Psoriatic arthropathy
     Dosage: 40 MG, QW
     Route: 058
     Dates: start: 20240108, end: 20240424
  12. IDACIO [Suspect]
     Active Substance: ADALIMUMAB-AACF
     Dosage: 40 MG, QW
     Route: 058
     Dates: start: 20240108, end: 20240424
  13. IDACIO [Suspect]
     Active Substance: ADALIMUMAB-AACF
     Dosage: 40 MG, QW
     Route: 058
     Dates: start: 20240108, end: 20240424
  14. IDACIO [Suspect]
     Active Substance: ADALIMUMAB-AACF
     Dosage: 40 MG, QW
     Route: 058
     Dates: start: 20240108, end: 20240424

REACTIONS (1)
  - Pulmonary tuberculosis [Recovering/Resolving]

NARRATIVE: CASE EVENT DATE: 20240715
